FAERS Safety Report 6083117-8 (Version None)
Quarter: 2009Q1

REPORT INFORMATION
  Report Type: 
  Country: None (occurrence: None)
  Receive Date: 20090213
  Receipt Date: 20090213
  Transmission Date: 20090719
  Serious: Yes (Other)
  Sender: FDA-Public Use
  Company Number: None

PATIENT
  Age: 35 Year
  Sex: Female
  Weight: 23.1334 kg

DRUGS (1)
  1. TRI-LUMA [Suspect]
     Indication: SKIN DISCOLOURATION
     Dosage: 1 DAILY NIGHTS
     Dates: start: 20081201, end: 20090101

REACTIONS (1)
  - SKIN DISCOLOURATION [None]
